FAERS Safety Report 7706157-9 (Version None)
Quarter: 2011Q3

REPORT INFORMATION
  Report Type: 
  Country: None (occurrence: None)
  Receive Date: 20110824
  Receipt Date: 20110815
  Transmission Date: 20111222
  Serious: Yes (Hospitalization, Other)
  Sender: FDA-Public Use
  Company Number: US-NOVOPROD-328532

PATIENT
  Sex: Female
  Weight: 92.063 kg

DRUGS (1)
  1. NORDITROPIN NORDIFLEX [Suspect]
     Indication: GROWTH HORMONE DEFICIENCY
     Dosage: 5 MG,  MONDAY THROUGH FRIDAY
     Route: 058
     Dates: start: 20110224, end: 20110403

REACTIONS (2)
  - HYPERSENSITIVITY [None]
  - CYST [None]
